FAERS Safety Report 9408614 (Version 7)
Quarter: 2014Q4

REPORT INFORMATION
  Report Type: Spontaneous
  Country: US (occurrence: None)
  Receive Date: 20130716
  Receipt Date: 20141231
  Transmission Date: 20150529
  Serious: Yes (Disabling, Other)
  Sender: FDA-Public Use
  Company Number: JPI-P-033408

PATIENT
  Age: 39 Year
  Sex: Male
  Weight: 88.6 kg

DRUGS (12)
  1. DEXTROAMPHETAMINE SULFATE. [Concomitant]
     Active Substance: DEXTROAMPHETAMINE SULFATE
     Route: 048
     Dates: start: 2011
  2. DOSTINEX(CABERGOLINE) [Concomitant]
  3. XYREM [Suspect]
     Active Substance: SODIUM OXYBATE
     Dosage: 9 GM (4.5 GM, 2 IN 1 D)
     Route: 048
     Dates: start: 20070214
  4. ALPRAZOLAM (ALPRAZOLAM) [Concomitant]
     Active Substance: ALPRAZOLAM
  5. XYREM [Suspect]
     Active Substance: SODIUM OXYBATE
     Indication: INSOMNIA
     Dosage: 9 GM (4.5 GM, 2 IN 1 D)
     Route: 048
     Dates: start: 20070214
  6. AMBIEN(ZOLPIDEM TARTRATE) [Concomitant]
  7. XANAX [Suspect]
     Active Substance: ALPRAZOLAM
     Indication: PRODUCT USED FOR UNKNOWN INDICATION
  8. DEXEDRINE [Suspect]
     Active Substance: DEXTROAMPHETAMINE SULFATE
     Indication: NARCOLEPSY
     Dates: start: 2011
  9. PREGABALIN (PREGABALIN) [Concomitant]
     Active Substance: PREGABALIN
  10. NAMENDA [Concomitant]
     Active Substance: MEMANTINE HYDROCHLORIDE
  11. SELEGILINE HYDROCHLORIDE (SELEGILINE HYDROCHLORIDE) [Concomitant]
  12. ACETAMINOPHEN W/HYDROCODONE BITARTRATE (ACETAMINOPHEN W/NYDROCODONE BITARTRATE) [Concomitant]

REACTIONS (21)
  - Off label use [None]
  - Drug withdrawal syndrome [None]
  - Dysphemia [None]
  - Decreased appetite [None]
  - Feeling hot [None]
  - Intentional product misuse [None]
  - Activities of daily living impaired [None]
  - Skin discolouration [None]
  - Umbilical hernia [None]
  - Anorexia nervosa [None]
  - Scar [None]
  - Back pain [None]
  - Intervertebral disc protrusion [None]
  - Foot deformity [None]
  - Muscle twitching [None]
  - Inguinal hernia [None]
  - Compulsive hoarding [None]
  - Incorrect dose administered [None]
  - Gait disturbance [None]
  - Pain [None]
  - Post procedural complication [None]

NARRATIVE: CASE EVENT DATE: 201301
